FAERS Safety Report 14869456 (Version 2)
Quarter: 2018Q2

REPORT INFORMATION
  Report Type: Spontaneous
  Country: US (occurrence: US)
  Receive Date: 20180509
  Receipt Date: 20180510
  Transmission Date: 20180711
  Serious: No
  Sender: FDA-Public Use
  Company Number: US-PFIZER INC-2018186018

PATIENT
  Age: 63 Year
  Sex: Male
  Weight: 104.31 kg

DRUGS (1)
  1. SUTENT [Suspect]
     Active Substance: SUNITINIB MALATE
     Indication: METASTATIC RENAL CELL CARCINOMA
     Dosage: 50 MG, CYCLIC (1 CAPSULE BY MOUTH ONCE A DAY FOR 28 DAYS)
     Route: 048
     Dates: start: 201507, end: 201805

REACTIONS (2)
  - Neoplasm progression [Not Recovered/Not Resolved]
  - Weight fluctuation [Unknown]

NARRATIVE: CASE EVENT DATE: 201801
